FAERS Safety Report 9157685 (Version 3)
Quarter: 2014Q1

REPORT INFORMATION
  Report Type: Spontaneous
  Country: US (occurrence: US)
  Receive Date: 20130312
  Receipt Date: 20140307
  Transmission Date: 20141002
  Serious: No
  Sender: FDA-Public Use
  Company Number: US-B.I. PHARMACEUTICALS,INC./RIDGEFIELD-2013-BI-06330BP

PATIENT
  Age: 49 Year
  Sex: Female
  Weight: 54 kg

DRUGS (10)
  1. COMBIVENT [Suspect]
     Indication: ASTHMA
     Route: 055
     Dates: start: 20130130
  2. COMBIVENT [Suspect]
     Indication: ASTHMA
     Route: 055
  3. ADVAIR [Concomitant]
     Route: 055
  4. SINGULAIR [Concomitant]
     Route: 048
  5. ALLEGRA [Concomitant]
     Route: 048
  6. LITHIUM [Concomitant]
     Indication: DEPRESSION
     Route: 048
  7. FLONASE [Concomitant]
     Route: 045
  8. PROZAC [Concomitant]
     Indication: DEPRESSION
     Route: 048
  9. KLONOPIN [Concomitant]
     Route: 048
  10. DIAZEPAM [Concomitant]
     Route: 048

REACTIONS (8)
  - Dyspnoea [Recovered/Resolved]
  - Drug ineffective [Not Recovered/Not Resolved]
  - Chest discomfort [Recovered/Resolved]
  - Wheezing [Recovered/Resolved]
  - Pneumonia [Recovered/Resolved]
  - Pleurisy [Recovered/Resolved]
  - Product quality issue [Recovered/Resolved]
  - Overdose [Unknown]
